FAERS Safety Report 22279117 (Version 1)
Quarter: 2023Q2

REPORT INFORMATION
  Report Type: Spontaneous
  Country: US (occurrence: None)
  Receive Date: 20230502
  Receipt Date: 20230502
  Transmission Date: 20230721
  Serious: Yes (Hospitalization)
  Sender: FDA-Public Use
  Company Number: None

PATIENT
  Age: 72 Year
  Sex: Male

DRUGS (13)
  1. OFEV [Suspect]
     Active Substance: NINTEDANIB
     Indication: Interstitial lung disease
     Dosage: 150MG BID ORAL
     Route: 048
     Dates: start: 20160314, end: 20230217
  2. OFEV [Suspect]
     Active Substance: NINTEDANIB
     Indication: Interstitial lung disease
     Dosage: 100MG BID ORAL
     Route: 048
     Dates: start: 20160314, end: 20230217
  3. NORCO [Concomitant]
     Active Substance: ACETAMINOPHEN\HYDROCODONE BITARTRATE
  4. POSACONAZOLE [Concomitant]
     Active Substance: POSACONAZOLE
  5. VENETOCLAX [Concomitant]
     Active Substance: VENETOCLAX
  6. ALLOPURINOL [Concomitant]
     Active Substance: ALLOPURINOL
  7. ACYCLOVIR [Concomitant]
     Active Substance: ACYCLOVIR
  8. IPRATROPIUM [Concomitant]
     Active Substance: IPRATROPIUM
  9. ALBUTEROL SULFATE [Concomitant]
     Active Substance: ALBUTEROL SULFATE
  10. LOPERAMIDE [Concomitant]
     Active Substance: LOPERAMIDE
  11. FAMOTIDINE [Concomitant]
     Active Substance: FAMOTIDINE
  12. ADVAIR HFA [Concomitant]
     Active Substance: FLUTICASONE PROPIONATE\SALMETEROL XINAFOATE
  13. ALENDRONATE [Concomitant]
     Active Substance: ALENDRONATE SODIUM

REACTIONS (6)
  - Idiopathic pulmonary fibrosis [None]
  - Fall [None]
  - Pancytopenia [None]
  - Thrombocytopenia [None]
  - Pneumomediastinum [None]
  - Pneumonia [None]

NARRATIVE: CASE EVENT DATE: 20230217
